FAERS Safety Report 14448871 (Version 2)
Quarter: 2018Q1

REPORT INFORMATION
  Report Type: Report from Study
  Country: IT (occurrence: IT)
  Receive Date: 20180126
  Receipt Date: 20180212
  Transmission Date: 20180509
  Serious: Yes (Other)
  Sender: FDA-Public Use
  Company Number: IT-TEVA-2018-IT-849785

PATIENT
  Age: 18 Year
  Sex: Male

DRUGS (23)
  1. ETOPOSIDE. [Suspect]
     Active Substance: ETOPOSIDE
     Dosage: RECEIVED TWO CYCLES OF R-ICE (RITUXIMAB IFOSFAMIDE, CARBOPLATIN, ETOPOSIDE).
     Route: 065
  2. LEVOLEUCOVORIN. [Suspect]
     Active Substance: LEVOLEUCOVORIN
     Dosage: RECEIVED 7.5 MG/M2 AT 48 AND 54 HOURS AFTER METHOTREXATE ADMINISTRATION.
     Route: 042
  3. DEXAMETHASONE. [Suspect]
     Active Substance: DEXAMETHASONE
     Indication: PRIMARY MEDIASTINAL LARGE B-CELL LYMPHOMA
     Dosage: RECEIVED 10 MG/M2 IN 2 COURSES OF COURSE AA AND 3 COURSES OF COURSE BB ON 1 TO 5.
     Route: 065
  4. RITUXIMAB. [Suspect]
     Active Substance: RITUXIMAB
     Indication: PRIMARY MEDIASTINAL LARGE B-CELL LYMPHOMA
     Dosage: 375 MG/M2 ON DAY 0: 2 COURSES OF COURSE AA, 3 COURSES OF COURSE BB AND 2 COURSES OF COURSE CC
     Route: 065
  5. CYTARABINE. [Suspect]
     Active Substance: CYTARABINE
     Indication: PRIMARY MEDIASTINAL LARGE B-CELL LYMPHOMA
     Dosage: 150 MG/M2 IN TWO DOSES (DOSES ARE 12 HOURS APART) FOR 1 HOUR ON DAY 4 AND 5: 2 COURSES OF COURSE AA
     Route: 042
  6. DOXORUBICIN [Suspect]
     Active Substance: DOXORUBICIN
     Indication: PRIMARY MEDIASTINAL LARGE B-CELL LYMPHOMA
     Dosage: 30 MG/M2 DAILY FOR 4 HOURS ON DAY 4 AND 5 (3 COURSES OF COURSE BB)
     Route: 042
  7. DEXAMETHASONE. [Suspect]
     Active Substance: DEXAMETHASONE
     Dosage: RECEIVED 5 MG/M2 AND 10 MG/M2 ON DAY 1 AND 2 OF PREPHASE THERAPY
     Route: 065
  8. CYCLOPHOSPHAMIDE. [Suspect]
     Active Substance: CYCLOPHOSPHAMIDE
     Indication: PRIMARY MEDIASTINAL LARGE B-CELL LYMPHOMA
     Dosage: 200 MG/M2/DAY FOR 1 HOUR ON DAY 1 AND 2: IN PREPHASE THERAPY
     Route: 042
  9. CARBOPLATIN. [Suspect]
     Active Substance: CARBOPLATIN
     Indication: PRIMARY MEDIASTINAL LARGE B-CELL LYMPHOMA
     Dosage: RECEIVED TWO CYCLES OF R-ICE (RITUXIMAB IFOSFAMIDE, CARBOPLATIN, ETOPOSIDE).
     Route: 065
  10. LEVOLEUCOVORIN. [Suspect]
     Active Substance: LEVOLEUCOVORIN
     Indication: PRIMARY MEDIASTINAL LARGE B-CELL LYMPHOMA
     Dosage: RECEIVED 15 MG/M2 AT 42 HOURS AFTER METHOTREXATE
     Route: 042
  11. METHOTREXATE. [Suspect]
     Active Substance: METHOTREXATE
     Indication: PRIMARY MEDIASTINAL LARGE B-CELL LYMPHOMA
     Dosage: METHOTREXATE 3 G/M2 (10% OF DOSE GIVEN IN 0.5 HOURS, 90% OF DOSE OVER 23.5 HOURS) ON DAY 1 (2 COU...
     Route: 042
  12. CYTARABINE. [Suspect]
     Active Substance: CYTARABINE
     Dosage: 3 G/M2 IN TWO DOSES (DOSES ARE 12 HOURS APART) FOR 3 HOURS ON DAY 1 AND 2: 2 COURSES OF COURSE CC
     Route: 042
  13. PREDNISOLONE. [Suspect]
     Active Substance: PREDNISOLONE
     Indication: PRIMARY MEDIASTINAL LARGE B-CELL LYMPHOMA
     Dosage: METHOTREXATE, CYTARABINE AND PREDNISOLONE (12MG+30MG+10MG) ON DAY 1: IN PREPHASE THERAPY, 2 COURS...
     Route: 037
  14. ETOPOSIDE. [Suspect]
     Active Substance: ETOPOSIDE
     Indication: PRIMARY MEDIASTINAL LARGE B-CELL LYMPHOMA
     Dosage: 100 MG/M2 FOR 2 HOURS ON DAY 4 AND 5 (2 COURSES OF COURSE AA AND 2 COURSES OF COURSE CC)
     Route: 042
  15. RITUXIMAB. [Suspect]
     Active Substance: RITUXIMAB
     Dosage: RECEIVED TWO CYCLES OF R-ICE (RITUXIMAB IFOSFAMIDE, CARBOPLATIN, ETOPOSIDE).
     Route: 065
  16. DEXAMETHASONE. [Suspect]
     Active Substance: DEXAMETHASONE
     Dosage: RECEIVED 20 MG/M2 IN 2 COURSES OF COURSE CC ON DAY 0 TO 5.
     Route: 065
  17. CYTARABINE. [Suspect]
     Active Substance: CYTARABINE
     Dosage: METHOTREXATE, CYTARABINE AND PREDNISOLONE (12MG+30MG+10MG) ON DAY 1: IN PREPHASE THERAPY, 2 COURS...
     Route: 037
  18. VINDESINE [Suspect]
     Active Substance: VINDESINE
     Indication: PRIMARY MEDIASTINAL LARGE B-CELL LYMPHOMA
     Dosage: 3 MG/M2 ON DAY 1 (2 COURSES OF COURSE CC)
     Route: 042
  19. VINCRISTINE [Suspect]
     Active Substance: VINCRISTINE
     Indication: PRIMARY MEDIASTINAL LARGE B-CELL LYMPHOMA
     Dosage: 1.5 MG/M2 ON DAY 1 (2 COURSES OF COURSE AA AND 3 COURSES OF COURSE BB)
     Route: 042
  20. METHOTREXATE. [Suspect]
     Active Substance: METHOTREXATE
     Dosage: METHOTREXATE, CYTARABINE AND PREDNISOLONE (12MG+30MG+10MG) ON DAY 1: IN PREPHASE THERAPY, 2 COURS...
     Route: 037
  21. IFOSFAMIDE. [Suspect]
     Active Substance: IFOSFAMIDE
     Indication: PRIMARY MEDIASTINAL LARGE B-CELL LYMPHOMA
     Dosage: 800 MG/M2 FOR 1 HOUR ON DAY 1 TO 5: COURSE AA (2 COURSES)
     Route: 042
  22. IFOSFAMIDE. [Suspect]
     Active Substance: IFOSFAMIDE
     Dosage: RECEIVED TWO CYCLES OF R-ICE (RITUXIMAB IFOSFAMIDE, CARBOPLATIN, ETOPOSIDE).
     Route: 065
  23. CYCLOPHOSPHAMIDE. [Suspect]
     Active Substance: CYCLOPHOSPHAMIDE
     Dosage: 200 MG/M2/DAY FOR 1 HOUR ON DAY 1 TO 5: 3 COURSES OF COURSE BB
     Route: 042

REACTIONS (1)
  - Dyspnoea [Unknown]
